FAERS Safety Report 13823898 (Version 3)
Quarter: 2017Q4

REPORT INFORMATION
  Report Type: Spontaneous
  Country: US (occurrence: US)
  Receive Date: 20170802
  Receipt Date: 20171016
  Transmission Date: 20180320
  Serious: No
  Sender: FDA-Public Use
  Company Number: US-PFIZER INC-2017331936

PATIENT
  Age: 75 Year
  Sex: Female
  Weight: 47.63 kg

DRUGS (1)
  1. MISOPROSTOL. [Suspect]
     Active Substance: MISOPROSTOL
     Indication: GASTRIC ULCER
     Dosage: 100 UG, UNK (ONCE OR TWICE DAILY)
     Route: 048

REACTIONS (1)
  - Drug ineffective [Unknown]
